FAERS Safety Report 12466414 (Version 8)
Quarter: 2017Q2

REPORT INFORMATION
  Report Type: Spontaneous
  Country: TW (occurrence: TW)
  Receive Date: 20160615
  Receipt Date: 20170613
  Transmission Date: 20170830
  Serious: Yes (Other)
  Sender: FDA-Public Use
  Company Number: TW-AMGEN-TWNSP2016060714

PATIENT
  Age: 80 Year
  Sex: Female

DRUGS (14)
  1. ENBREL [Suspect]
     Active Substance: ETANERCEPT
     Dosage: 25 MG, PER 10 DAYS
     Route: 058
     Dates: start: 20150717
  2. FOLIC ACID. [Concomitant]
     Active Substance: FOLIC ACID
     Indication: RHEUMATOID ARTHRITIS
     Dosage: 6 DF PER WEEK
  3. ANCOGEN [Concomitant]
     Dosage: 1 DF, QD
     Route: 048
  4. LEFLUNOMIDE. [Concomitant]
     Active Substance: LEFLUNOMIDE
     Dosage: 0.5 DF, QOD
  5. ENBREL [Suspect]
     Active Substance: ETANERCEPT
     Indication: RHEUMATOID ARTHRITIS
     Dosage: 25 MG, TWICE PER WEEK
     Route: 058
     Dates: start: 20060713
  6. CELECOXIB. [Concomitant]
     Active Substance: CELECOXIB
     Indication: RHEUMATOID ARTHRITIS
     Dosage: 1 DF, 2X/DAY
  7. LEFLUNOMIDE. [Concomitant]
     Active Substance: LEFLUNOMIDE
     Indication: RHEUMATOID ARTHRITIS
     Dosage: 1 DF, 1X/DAY
  8. TRAMACET [Concomitant]
     Active Substance: ACETAMINOPHEN\TRAMADOL
     Indication: RHEUMATOID ARTHRITIS
     Dosage: 1 DF, BID
  9. ENBREL [Suspect]
     Active Substance: ETANERCEPT
     Dosage: 25 MG, TWICE PER WEEK
     Route: 058
     Dates: start: 20100322
  10. ENBREL [Suspect]
     Active Substance: ETANERCEPT
     Dosage: 25 MG, ONCE PER WEEK
     Route: 058
     Dates: start: 20130404
  11. ANCOGEN [Concomitant]
     Indication: RHEUMATOID ARTHRITIS
     Dosage: 1 DF, BID
  12. CELECOXIB. [Concomitant]
     Active Substance: CELECOXIB
     Dosage: 1 DF, QD
     Route: 048
  13. PREDNISOLONE. [Concomitant]
     Active Substance: PREDNISOLONE
     Indication: RHEUMATOID ARTHRITIS
     Dosage: 1 DF, 1X/DAY
  14. SULFASALAZINE. [Concomitant]
     Active Substance: SULFASALAZINE
     Indication: RHEUMATOID ARTHRITIS
     Dosage: 1 DF, 2X/DAY

REACTIONS (3)
  - Blood creatine increased [Unknown]
  - Anaemia [Not Recovered/Not Resolved]
  - Mouth ulceration [Not Recovered/Not Resolved]
